FAERS Safety Report 23728573 (Version 1)
Quarter: 2024Q2

REPORT INFORMATION
  Report Type: Spontaneous
  Country: TW (occurrence: TW)
  Receive Date: 20240410
  Receipt Date: 20240410
  Transmission Date: 20240716
  Serious: Yes (Death, Other)
  Sender: FDA-Public Use
  Company Number: TW-AMGEN-TWNSP2024069883

PATIENT

DRUGS (2)
  1. BEVACIZUMAB [Suspect]
     Active Substance: BEVACIZUMAB
     Indication: Hepatocellular carcinoma
     Dosage: UNK, (5-15 MG/KG) Q3WK
     Route: 065
  2. ATEZOLIZUMAB [Suspect]
     Active Substance: ATEZOLIZUMAB
     Indication: Hepatocellular carcinoma
     Dosage: 1200 MILLIGRAM
     Route: 042

REACTIONS (30)
  - Death [Fatal]
  - Hepatocellular carcinoma [Unknown]
  - Hyperthyroidism [Unknown]
  - Dermatitis [Unknown]
  - Adverse event [Unknown]
  - Colitis [Unknown]
  - Peptic ulcer haemorrhage [Unknown]
  - Anal ulcer haemorrhage [Unknown]
  - Gastrointestinal haemorrhage [Unknown]
  - Thrombocytopenia [Unknown]
  - Intestinal perforation [Unknown]
  - Haemorrhage [Unknown]
  - Blood bilirubin increased [Unknown]
  - Blood alkaline phosphatase increased [Unknown]
  - Alanine aminotransferase increased [Unknown]
  - Aspartate aminotransferase increased [Unknown]
  - Insomnia [Unknown]
  - Drug effective for unapproved indication [Unknown]
  - Musculoskeletal pain [Unknown]
  - Decreased appetite [Unknown]
  - Therapy partial responder [Unknown]
  - Fatigue [Unknown]
  - Hypertension [Unknown]
  - Pyrexia [Unknown]
  - Proteinuria [Unknown]
  - Nausea [Unknown]
  - Headache [Unknown]
  - Infusion related reaction [Unknown]
  - Mouth ulceration [Unknown]
  - Off label use [Unknown]
